FAERS Safety Report 4718268-0 (Version None)
Quarter: 2005Q3

REPORT INFORMATION
  Report Type: 
  Country: None (occurrence: None)
  Receive Date: 20050714
  Receipt Date: 20050110
  Transmission Date: 20060218
  Serious: Yes (Other)
  Sender: FDA-Public Use
  Company Number: HQWYE522511JAN05

PATIENT
  Sex: Female
  Weight: 58.11 kg

DRUGS (2)
  1. ADVIL [Suspect]
     Dosage: 2 TABS, ORAL
     Route: 048
  2. HUMULIN (INSULIN HUMAN) [Concomitant]

REACTIONS (2)
  - ANAPHYLACTIC REACTION [None]
  - PARAESTHESIA [None]
